FAERS Safety Report 15455718 (Version 1)
Quarter: 2018Q4

REPORT INFORMATION
  Report Type: Spontaneous
  Country: IE (occurrence: IE)
  Receive Date: 20181002
  Receipt Date: 20181002
  Transmission Date: 20190204
  Serious: Yes (Life-Threatening, Hospitalization)
  Sender: FDA-Public Use
  Company Number: IE-MYLANLABS-2018M1071294

PATIENT
  Age: 42 Year
  Sex: Female

DRUGS (2)
  1. PARLODEL [Suspect]
     Active Substance: BROMOCRIPTINE MESYLATE
     Indication: MASTITIS
  2. PARLODEL [Suspect]
     Active Substance: BROMOCRIPTINE MESYLATE
     Indication: BREAST PAIN
     Dosage: 2.5 MG, UNK, 2.5MG X2 FOR THE FIRST 4 DAYS - REDUCED TO 1 FOR A FURTHER 2 DAYS
     Route: 048
     Dates: start: 20170819, end: 20170825

REACTIONS (10)
  - Disorientation [Recovered/Resolved]
  - Respiratory arrest [Recovered/Resolved]
  - Head injury [Recovered/Resolved]
  - Incontinence [Recovered/Resolved]
  - Cyanosis [Recovered/Resolved]
  - Disturbance in attention [Recovered/Resolved]
  - Loss of consciousness [Recovered/Resolved]
  - Seizure [Recovered/Resolved]
  - Slow response to stimuli [Recovered/Resolved]
  - Headache [Recovered/Resolved]

NARRATIVE: CASE EVENT DATE: 20170827
